FAERS Safety Report 4726241-1 (Version None)
Quarter: 2005Q3

REPORT INFORMATION
  Report Type: 
  Country: None (occurrence: None)
  Receive Date: 20050725
  Receipt Date: 20050217
  Transmission Date: 20060218
  Serious: Yes (Hospitalization, Disabling)
  Sender: FDA-Public Use
  Company Number: 2001-06-1053

PATIENT
  Age: 54 Year
  Sex: Male
  Weight: 65 kg

DRUGS (3)
  1. VIRAFERONPEG [Suspect]
     Indication: HEPATITIS C
     Dosage: 1.5 MCG/KG/WK SUBCUTANEO
     Route: 058
     Dates: start: 20010116, end: 20010605
  2. GLUCOPHAGE TABLETS 800 MG [Concomitant]
  3. GLIMEPIRIDE 4 MG [Concomitant]

REACTIONS (4)
  - CELLULITIS GANGRENOUS [None]
  - INJECTION SITE CELLULITIS [None]
  - NECROTISING FASCIITIS [None]
  - STREPTOCOCCAL INFECTION [None]
